FAERS Safety Report 9641418 (Version 2)
Quarter: 2014Q4

REPORT INFORMATION
  Report Type: Spontaneous
  Country: US (occurrence: US)
  Receive Date: 20131023
  Receipt Date: 20141027
  Transmission Date: 20150529
  Serious: Yes (Hospitalization)
  Sender: FDA-Public Use
  Company Number: US-ABBVIE-13P-163-1155668-00

PATIENT
  Age: 49 Year
  Sex: Female

DRUGS (1)
  1. LUPRON DEPOT [Suspect]
     Active Substance: LEUPROLIDE ACETATE
     Indication: ENDOMETRIOSIS
     Dosage: TOOK ONE DOSE OF THE 3.75 MG DEPOT
     Dates: start: 201306, end: 201308

REACTIONS (1)
  - Endometriosis [Recovering/Resolving]

NARRATIVE: CASE EVENT DATE: 20130919
